FAERS Safety Report 12333080 (Version 1)
Quarter: 2016Q2

REPORT INFORMATION
  Report Type: Spontaneous
  Country: US (occurrence: US)
  Receive Date: 20160504
  Receipt Date: 20160504
  Transmission Date: 20160815
  Serious: No
  Sender: FDA-Public Use
  Company Number: US-ROCHE-1688871

PATIENT
  Sex: Female

DRUGS (3)
  1. ESBRIET [Suspect]
     Active Substance: PIRFENIDONE
     Indication: PRODUCT USED FOR UNKNOWN INDICATION
     Route: 048
     Dates: start: 20150324
  2. MONTELUCAST [Concomitant]
     Active Substance: MONTELUKAST SODIUM
  3. GABAPENTINE [Concomitant]
     Active Substance: GABAPENTIN

REACTIONS (2)
  - Drug dose omission [Unknown]
  - Gastrooesophageal reflux disease [Not Recovered/Not Resolved]
